FAERS Safety Report 10230478 (Version 1)
Quarter: 2014Q2

REPORT INFORMATION
  Report Type: Spontaneous
  Country: US (occurrence: US)
  Receive Date: 20140611
  Receipt Date: 20140611
  Transmission Date: 20141212
  Serious: No
  Sender: FDA-Public Use
  Company Number: US-INCYTE CORPORATION-2014IN000870

PATIENT
  Sex: Male
  Weight: 86.17 kg

DRUGS (14)
  1. JAKAFI [Suspect]
     Indication: MYELOFIBROSIS
     Dosage: 20 MG, BID
     Route: 048
     Dates: start: 20140119
  2. METOPROLOL [Concomitant]
  3. SPIRONOLACTONE [Concomitant]
  4. WARFARIN [Concomitant]
  5. OMEPRAZOLE [Concomitant]
  6. TORSEMIDE [Concomitant]
  7. TERAZOSIN [Concomitant]
  8. ATORVASTATIN [Concomitant]
  9. DIGOX                              /00607901/ [Concomitant]
  10. LISINOPRIL [Concomitant]
  11. FUROSEMIDE [Concomitant]
  12. GABAPENTIN [Concomitant]
  13. HYDROXYUREA [Concomitant]
  14. IRON [Concomitant]

REACTIONS (1)
  - Rehabilitation therapy [Not Recovered/Not Resolved]
